FAERS Safety Report 7506545-X (Version None)
Quarter: 2011Q2

REPORT INFORMATION
  Report Type: 
  Country: None (occurrence: None)
  Receive Date: 20110526
  Receipt Date: 20110519
  Transmission Date: 20111010
  Serious: Yes (Death)
  Sender: FDA-Public Use
  Company Number: FR-MERCK-1105FRA00104

PATIENT

DRUGS (3)
  1. PRIMAXIN [Suspect]
     Indication: PNEUMONIA
     Route: 041
     Dates: start: 20100401
  2. COLISTIN SULFATE [Suspect]
     Indication: PNEUMONIA
     Route: 055
  3. AMIKACIN SULFATE [Suspect]
     Indication: PNEUMONIA
     Route: 065

REACTIONS (2)
  - DEATH [None]
  - MULTIPLE-DRUG RESISTANCE [None]
